FAERS Safety Report 4342555-1 (Version None)
Quarter: 2004Q2

REPORT INFORMATION
  Report Type: 
  Country: None (occurrence: None)
  Receive Date: 20040421
  Receipt Date: 20040407
  Transmission Date: 20050107
  Serious: Yes (Hospitalization)
  Sender: FDA-Public Use
  Company Number: PHBS2004SE04744

PATIENT
  Age: 73 Year
  Sex: Male

DRUGS (1)
  1. EXELON [Suspect]
     Indication: DEMENTIA ALZHEIMER'S TYPE
     Dosage: 20 ML/D
     Route: 048

REACTIONS (5)
  - ACCIDENTAL OVERDOSE [None]
  - DIARRHOEA [None]
  - MEDICATION ERROR [None]
  - TREMOR [None]
  - VOMITING [None]
